FAERS Safety Report 25018005 (Version 1)
Quarter: 2025Q1

REPORT INFORMATION
  Report Type: Spontaneous
  Country: DE (occurrence: DE)
  Receive Date: 20250227
  Receipt Date: 20250227
  Transmission Date: 20250408
  Serious: Yes (Life-Threatening, Other)
  Sender: Haleon PLC
  Company Number: None

PATIENT
  Age: 52 Year
  Sex: Male

DRUGS (2)
  1. DICLOFENAC [Suspect]
     Active Substance: DICLOFENAC
     Indication: Back pain
  2. METAMIZOL [Suspect]
     Active Substance: METAMIZOLE SODIUM
     Indication: Back pain

REACTIONS (11)
  - Pneumonia [Recovered/Resolved]
  - Leukopenia [Unknown]
  - Dyspnoea [Unknown]
  - Pyrexia [Unknown]
  - Myelosuppression [Recovered/Resolved]
  - Nausea [Unknown]
  - Cholestasis [Unknown]
  - Disorientation [Unknown]
  - Respiratory disorder [Unknown]
  - Thrombocytopenia [Unknown]
  - Renal failure [Unknown]

NARRATIVE: CASE EVENT DATE: 19920906
